FAERS Safety Report 25605812 (Version 4)
Quarter: 2025Q3

REPORT INFORMATION
  Report Type: Spontaneous
  Country: EU (occurrence: EU)
  Receive Date: 20250725
  Receipt Date: 20250905
  Transmission Date: 20251020
  Serious: Yes (Other)
  Sender: UCB
  Company Number: EU-UCBSA-2025044857

PATIENT
  Age: 56 Year
  Sex: Male

DRUGS (9)
  1. BIMEKIZUMAB [Suspect]
     Active Substance: BIMEKIZUMAB
     Indication: Hidradenitis
     Dosage: 320 MILLIGRAM, EV 2 WEEKS(QOW)
     Route: 058
     Dates: start: 20250506
  2. BUDESONIDE [Concomitant]
     Active Substance: BUDESONIDE
     Indication: Mastocytosis
     Dosage: 3 MILLIGRAM, 2X/DAY (BID)
     Route: 048
     Dates: start: 2005
  3. MONTELUKAST [Concomitant]
     Active Substance: MONTELUKAST
     Indication: Mastocytosis
     Dosage: 5 MILLIGRAM, ONCE DAILY (QD)
     Route: 048
     Dates: start: 2005
  4. CETIRIZINE [Concomitant]
     Active Substance: CETIRIZINE HYDROCHLORIDE
     Indication: Mastocytosis
     Dosage: 10 MILLIGRAM, ONCE DAILY (QD)
     Route: 048
     Dates: start: 2005
  5. OMEPRAZOLE [Concomitant]
     Active Substance: OMEPRAZOLE
     Indication: Mastocytosis
     Dosage: 40 MILLIGRAM, ONCE DAILY (QD)
     Route: 048
     Dates: start: 2005
  6. LOPERAMIDE [Concomitant]
     Active Substance: LOPERAMIDE
     Indication: Mastocytosis
     Dosage: 2 MILLIGRAM, 2X/DAY (BID)
     Dates: start: 2005
  7. LEVOTHYROXINE [Concomitant]
     Active Substance: LEVOTHYROXINE
     Indication: Hypothyroidism
     Dosage: 125 MILLIGRAM, ONCE DAILY (QD)
     Dates: start: 2000
  8. NEBIVOLOL [Concomitant]
     Active Substance: NEBIVOLOL
     Indication: Hypertension
     Dosage: 5 MILLIGRAM, 2X/DAY (BID)
     Dates: start: 2005
  9. LISINOPRIL [Concomitant]
     Active Substance: LISINOPRIL
     Indication: Hypertension
     Dosage: 5 MILLIGRAM, 2X/DAY (BID)
     Dates: start: 2005

REACTIONS (4)
  - Diarrhoea haemorrhagic [Recovered/Resolved]
  - Glossitis [Recovered/Resolved]
  - Muscular weakness [Not Recovered/Not Resolved]
  - Decreased appetite [Not Recovered/Not Resolved]

NARRATIVE: CASE EVENT DATE: 20250624
